FAERS Safety Report 13121445 (Version 1)
Quarter: 2017Q1

REPORT INFORMATION
  Report Type: Spontaneous
  Country: US (occurrence: US)
  Receive Date: 20170114
  Receipt Date: 20170114
  Transmission Date: 20170428
  Serious: No
  Sender: FDA-Public Use
  Company Number: None

PATIENT
  Age: 54 Year
  Sex: Female
  Weight: 72.9 kg

DRUGS (8)
  1. GLUCOSAMINE [Concomitant]
     Active Substance: GLUCOSAMINE
  2. DULERA [Concomitant]
     Active Substance: FORMOTEROL FUMARATE DIHYDRATE\MOMETASONE FUROATE
  3. VENTOLIN HFA [Concomitant]
     Active Substance: ALBUTEROL SULFATE
  4. HYDROXYZINE [Concomitant]
     Active Substance: HYDROXYZINE HYDROCHLORIDE
  5. ROCEPHIN [Suspect]
     Active Substance: CEFTRIAXONE SODIUM
     Indication: RESPIRATORY TRACT INFECTION
     Dosage: ?          QUANTITY:1 INJECTION(S);OTHER FREQUENCY:ONE TIME IM;?
     Route: 030
     Dates: start: 20170104, end: 20170104
  6. BECONASE AQ [Concomitant]
     Active Substance: BECLOMETHASONE DIPROPIONATE MONOHYDRATE
  7. XANAX [Concomitant]
     Active Substance: ALPRAZOLAM
  8. LORATADINE. [Concomitant]
     Active Substance: LORATADINE

REACTIONS (13)
  - Vomiting [None]
  - Pyrexia [None]
  - Diarrhoea [None]
  - Nausea [None]
  - Feeling abnormal [None]
  - Asthma [None]
  - Dizziness [None]
  - Arthralgia [None]
  - Blood pressure increased [None]
  - Chills [None]
  - Asthenia [None]
  - Dyspepsia [None]
  - Heart rate increased [None]

NARRATIVE: CASE EVENT DATE: 20170104
